FAERS Safety Report 24092042 (Version 3)
Quarter: 2024Q4

REPORT INFORMATION
  Report Type: Report from Study
  Country: US (occurrence: US)
  Receive Date: 20240715
  Receipt Date: 20241015
  Transmission Date: 20250115
  Serious: Yes (Other)
  Sender: MERCK
  Company Number: US-009507513-2407USA004997

PATIENT
  Sex: Female
  Weight: 59 kg

DRUGS (11)
  1. SOTATERCEPT [Suspect]
     Active Substance: SOTATERCEPT
     Indication: Pulmonary arterial hypertension
     Dosage: 0.8 MILLILITER, Q3, STRENGTH: 45 MILLIGRAM
     Route: 058
     Dates: start: 20240618
  2. REMODULIN [Suspect]
     Active Substance: TREPROSTINIL
     Indication: Pulmonary arterial hypertension
     Dosage: UNK
     Route: 058
     Dates: start: 20221209
  3. REMODULIN [Suspect]
     Active Substance: TREPROSTINIL
     Dosage: 0.075 MICROGRAM PER KILOGRAM (PHARMACY FILLED WITH 2.6 ML PER CASSETTE. RATE OF 29 MCL PER HOUR)
     Route: 058
  4. TORSEMIDE [Suspect]
     Active Substance: TORSEMIDE
  5. ORENITRAM [Suspect]
     Active Substance: TREPROSTINIL
     Indication: Pulmonary arterial hypertension
     Dosage: 10.75 MG (2 TABLETS OF 5 MG AND 3 TABLETS OF 0.25 MG), TID
     Route: 048
     Dates: start: 2024
  6. AMBRISENTAN [Concomitant]
     Active Substance: AMBRISENTAN
  7. TADALAFIL [Concomitant]
     Active Substance: TADALAFIL
  8. LISINOPRIL [Concomitant]
     Active Substance: LISINOPRIL
  9. DIGOXIN [Concomitant]
     Active Substance: DIGOXIN
  10. VITAMIN D2 [Concomitant]
     Active Substance: ERGOCALCIFEROL
  11. OXYGEN [Concomitant]
     Active Substance: OXYGEN

REACTIONS (6)
  - Haematochezia [Recovered/Resolved]
  - Dyspnoea exertional [Unknown]
  - Medical device site swelling [Not Recovered/Not Resolved]
  - Decreased appetite [Unknown]
  - Pain in jaw [Unknown]
  - Hair texture abnormal [Unknown]

NARRATIVE: CASE EVENT DATE: 20240101
